FAERS Safety Report 7747209-7 (Version None)
Quarter: 2011Q3

REPORT INFORMATION
  Report Type: 
  Country: None (occurrence: None)
  Receive Date: 20110913
  Receipt Date: 20110907
  Transmission Date: 20111222
  Serious: Yes (Other)
  Sender: FDA-Public Use
  Company Number: US-PFIZER INC-2011210004

PATIENT
  Sex: Female

DRUGS (2)
  1. LATANOPROST [Suspect]
     Indication: INTRAOCULAR PRESSURE INCREASED
     Dosage: UNK
     Dates: start: 20110401, end: 20110401
  2. PANTOPRAZOLE [Concomitant]
     Dosage: UNK

REACTIONS (3)
  - HYPOACUSIS [None]
  - EAR INFECTION [None]
  - UPPER RESPIRATORY TRACT INFECTION [None]
